FAERS Safety Report 7647004-3 (Version None)
Quarter: 2011Q3

REPORT INFORMATION
  Report Type: 
  Country: None (occurrence: None)
  Receive Date: 20110801
  Receipt Date: 20110725
  Transmission Date: 20111222
  Serious: Yes (Other)
  Sender: FDA-Public Use
  Company Number: US-JNJFOC-20110712118

PATIENT
  Sex: Female

DRUGS (8)
  1. CALCIUM ACETATE [Concomitant]
     Indication: ELECTROLYTE SUBSTITUTION THERAPY
     Route: 048
  2. ONE A DAY MULTIVITAMIN [Concomitant]
     Indication: NUTRITIONAL SUPPORT
     Route: 048
  3. FENTANYL [Suspect]
     Indication: BACK PAIN
     Route: 062
     Dates: start: 20110715, end: 20110716
  4. ASPIRIN [Concomitant]
     Indication: BLOOD DISORDER
     Route: 048
  5. PREMARIN [Concomitant]
     Route: 048
  6. OXYCODONE HCL [Concomitant]
     Indication: PAIN
     Route: 048
     Dates: start: 20110701
  7. ZOCOR [Concomitant]
     Indication: BLOOD CHOLESTEROL INCREASED
     Route: 048
  8. LOPRESSOR [Concomitant]
     Indication: HYPERTENSION
     Route: 048
     Dates: start: 20070101

REACTIONS (1)
  - COMA [None]
